FAERS Safety Report 5649537-8 (Version None)
Quarter: 2008Q1

REPORT INFORMATION
  Report Type: 
  Country: None (occurrence: None)
  Receive Date: 20080304
  Receipt Date: 20080225
  Transmission Date: 20080703
  Serious: Yes (Hospitalization)
  Sender: FDA-Public Use
  Company Number: US-PFIZER INC-2008018023

PATIENT

DRUGS (1)
  1. LIPITOR [Suspect]

REACTIONS (3)
  - APPARENT LIFE THREATENING EVENT [None]
  - COMA [None]
  - CONVULSION [None]
